FAERS Safety Report 20752194 (Version 2)
Quarter: 2022Q2

REPORT INFORMATION
  Report Type: Spontaneous
  Country: US (occurrence: US)
  Receive Date: 20220426
  Receipt Date: 20220428
  Transmission Date: 20220721
  Serious: No
  Sender: FDA-Public Use
  Company Number: US-NOVARTISTESTPH-NVSC2022US095452

PATIENT
  Sex: Female

DRUGS (2)
  1. LETROZOLE [Suspect]
     Active Substance: LETROZOLE
     Indication: Breast cancer
     Dosage: 125 MG, QD
     Route: 048
  2. IBRANCE [Suspect]
     Active Substance: PALBOCICLIB
     Indication: Breast cancer
     Dosage: 125 MG,(21 DAYS)
     Route: 065

REACTIONS (5)
  - Migraine [Unknown]
  - Hair growth abnormal [Unknown]
  - Red blood cell count decreased [Unknown]
  - Product dose omission issue [Unknown]
  - White blood cell count decreased [Unknown]
